FAERS Safety Report 25578141 (Version 1)
Quarter: 2025Q3

REPORT INFORMATION
  Report Type: Spontaneous
  Country: US (occurrence: US)
  Receive Date: 20250718
  Receipt Date: 20250718
  Transmission Date: 20251021
  Serious: No
  Sender: INSUD PHARMA
  Company Number: US-INSUD PHARMA-2507US05759

PATIENT

DRUGS (2)
  1. SLYND [Suspect]
     Active Substance: DROSPIRENONE
     Indication: Menstrual cycle management
     Route: 048
     Dates: start: 2025, end: 2025
  2. SLYND [Suspect]
     Active Substance: DROSPIRENONE
     Indication: Uterine leiomyoma

REACTIONS (7)
  - Anxiety [Recovering/Resolving]
  - Mood altered [Recovering/Resolving]
  - Anger [Recovering/Resolving]
  - Violence-related symptom [Recovering/Resolving]
  - Screaming [Recovering/Resolving]
  - Crying [Recovering/Resolving]
  - Product prescribing issue [Unknown]

NARRATIVE: CASE EVENT DATE: 20250101
